FAERS Safety Report 11815610 (Version 1)
Quarter: 2015Q4

REPORT INFORMATION
  Report Type: Spontaneous
  Country: US (occurrence: US)
  Receive Date: 20151209
  Receipt Date: 20151209
  Transmission Date: 20160305
  Serious: No
  Sender: FDA-Public Use
  Company Number: US-TEVA-616025USA

PATIENT
  Age: 40 Year
  Sex: Female

DRUGS (2)
  1. COPAXONE [Suspect]
     Active Substance: GLATIRAMER ACETATE
     Indication: MULTIPLE SCLEROSIS
     Dates: start: 2012
  2. COPAXONE [Suspect]
     Active Substance: GLATIRAMER ACETATE
     Dates: end: 20151101

REACTIONS (15)
  - Hyperhidrosis [Unknown]
  - Erythema [Unknown]
  - Pain in extremity [Recovering/Resolving]
  - Dyspnoea [Unknown]
  - Lid sulcus deepened [Unknown]
  - Asthenia [Recovering/Resolving]
  - Chest pain [Not Recovered/Not Resolved]
  - Arthralgia [Unknown]
  - Tremor [Unknown]
  - Injection site pain [Unknown]
  - Chest discomfort [Unknown]
  - Body temperature decreased [Unknown]
  - Paraesthesia [Unknown]
  - Injection site haemorrhage [Recovering/Resolving]
  - Skin discolouration [Recovering/Resolving]

NARRATIVE: CASE EVENT DATE: 20121029
